FAERS Safety Report 10086831 (Version 1)
Quarter: 2014Q2

REPORT INFORMATION
  Report Type: Report from Study
  Country: KR (occurrence: KR)
  Receive Date: 20140418
  Receipt Date: 20140418
  Transmission Date: 20141212
  Serious: Yes (Hospitalization)
  Sender: FDA-Public Use
  Company Number: KR-GLAXOSMITHKLINE-B0986516A

PATIENT
  Age: 59 Year
  Sex: Female
  Weight: 54.7 kg

DRUGS (2)
  1. TYKERB [Suspect]
     Indication: BREAST CANCER
     Dosage: 1250MG PER DAY
     Route: 048
     Dates: start: 20130814, end: 20130829
  2. CAPECITABINE [Concomitant]
     Indication: BREAST CANCER
     Dosage: 1650MG PER DAY
     Route: 048
     Dates: start: 20130814, end: 20130829

REACTIONS (2)
  - Haematochezia [Not Recovered/Not Resolved]
  - Haematemesis [Not Recovered/Not Resolved]
